FAERS Safety Report 5007237-1 (Version None)
Quarter: 2006Q1

REPORT INFORMATION
  Report Type: 
  Country: None (occurrence: None)
  Receive Date: 20060320
  Receipt Date: 20050302
  Transmission Date: 20060701
  Serious: Yes (Hospitalization, Disabling)
  Sender: FDA-Public Use
  Company Number: 2005-03-0324

PATIENT
  Age: 34 Year
  Sex: Female
  Weight: 82.1011 kg

DRUGS (6)
  1. PEG-INTRON [Suspect]
     Indication: HEPATITIS C
     Dosage: 150 MCG QWK, SUBCUTANEOUS
     Route: 058
     Dates: start: 20041105, end: 20050309
  2. RIBAVIRIN [Suspect]
     Indication: HEPATITIS C
     Dosage: 600M BID, ORAL
     Route: 048
     Dates: start: 20041105, end: 20050309
  3. ZOLOFT [Concomitant]
  4. PREMARIN [Concomitant]
  5. TRIAMTERENE AND HYDROCHLOROTHIAZIDE [Concomitant]
  6. IBUPROFEN [Concomitant]

REACTIONS (14)
  - ABDOMINAL PAIN LOWER [None]
  - CONJUNCTIVITIS [None]
  - FATIGUE [None]
  - GENERALISED ANXIETY DISORDER [None]
  - HALLUCINATION [None]
  - INSOMNIA [None]
  - IRRITABILITY [None]
  - LIP ULCERATION [None]
  - MAJOR DEPRESSION [None]
  - OBSESSIVE-COMPULSIVE DISORDER [None]
  - PARANOIA [None]
  - PRURITUS [None]
  - RASH PAPULAR [None]
  - SCLERITIS [None]
